FAERS Safety Report 5590936-0 (Version None)
Quarter: 2008Q1

REPORT INFORMATION
  Report Type: 
  Country: None (occurrence: None)
  Receive Date: 20080115
  Receipt Date: 20080110
  Transmission Date: 20080703
  Serious: Yes (Other)
  Sender: FDA-Public Use
  Company Number: GB-WYE-G00869708

PATIENT
  Age: 44 Year
  Sex: Female
  Weight: 58 kg

DRUGS (6)
  1. VENLAFAXINE HYDROCHLORIDE [Suspect]
     Dosage: 75MG, FREQUENCY UNKNOWN
     Route: 048
     Dates: start: 20071108, end: 20071116
  2. ZOPICLONE [Concomitant]
     Dosage: 15MG, FREQUENCY UNKNOWN
     Route: 048
     Dates: start: 20071119, end: 20071123
  3. LORAZEPAM [Concomitant]
     Dosage: 4.5MG, FREQUENCY UNKNOWN
     Route: 048
     Dates: start: 20071119, end: 20071123
  4. NITRAZEPAM [Concomitant]
     Dosage: 5MG, FREQUENCY UNKNOWN
     Route: 048
     Dates: start: 20071108, end: 20071119
  5. SERTRALINE [Suspect]
     Dosage: 150MG, FREQUENCY UNKNOWN
     Route: 048
     Dates: start: 20071119
  6. DIAZEPAM [Concomitant]
     Dosage: 15MG, FREQUENCY UNKNOWN
     Route: 048
     Dates: start: 20071123, end: 20071214

REACTIONS (5)
  - ATAXIA [None]
  - COGNITIVE DISORDER [None]
  - COORDINATION ABNORMAL [None]
  - GAIT DISTURBANCE [None]
  - TREMOR [None]
